FAERS Safety Report 6384857-3 (Version None)
Quarter: 2009Q4

REPORT INFORMATION
  Report Type: 
  Country: None (occurrence: None)
  Receive Date: 20091002
  Receipt Date: 20090922
  Transmission Date: 20100525
  Serious: Yes (Death, Hospitalization)
  Sender: FDA-Public Use
  Company Number: US-BIOGENIDEC-2006BI008294

PATIENT
  Age: 52 Year
  Sex: Male
  Weight: 72 kg

DRUGS (2)
  1. AVONEX [Suspect]
     Indication: MULTIPLE SCLEROSIS
     Route: 030
     Dates: start: 19970201, end: 20030101
  2. AVONEX [Suspect]
     Route: 030
     Dates: start: 20030101, end: 20060501

REACTIONS (7)
  - ABASIA [None]
  - IMMUNE SYSTEM DISORDER [None]
  - PANCREATIC CARCINOMA [None]
  - PROCEDURAL PAIN [None]
  - VACCINATION COMPLICATION [None]
  - VOMITING [None]
  - WEIGHT DECREASED [None]
